FAERS Safety Report 8777566 (Version 1)
Quarter: 2012Q4

REPORT INFORMATION
  Report Type: 
  Country: US (occurrence: US)
  Receive Date: 20120912
  Receipt Date: 20120912
  Transmission Date: 20130627
  Serious: No
  Sender: FDA-Public Use
  Company Number: US-ASTRAZENECA-2012SE60021

PATIENT
  Age: 52 Year
  Sex: Female

DRUGS (9)
  1. SYMBICORT PMDI [Suspect]
     Dosage: 160/4.5 MCG, 2 PUFFS, TWO TIMES A DAY
     Route: 055
  2. SPIRIVA [Concomitant]
     Route: 055
  3. MOTRIN [Concomitant]
     Route: 048
  4. FERROUS SULFATE [Concomitant]
     Route: 048
  5. VITAMIN B-12 [Concomitant]
     Route: 048
  6. CALCIUM +VITAMIN D [Concomitant]
     Route: 048
  7. FISH OIL ETHYL ESTERS [Concomitant]
     Route: 048
  8. PRO AIR WITH HFA CFC [Concomitant]
     Dosage: AS REQUIRED, EVERY 6 HOURS
     Route: 055
  9. DEXILANT [Concomitant]
     Route: 048

REACTIONS (20)
  - Wheezing [Unknown]
  - Chronic obstructive pulmonary disease [Unknown]
  - Bronchitis chronic [Unknown]
  - Generalised anxiety disorder [Unknown]
  - Seasonal affective disorder [Unknown]
  - Vaginitis bacterial [Unknown]
  - Iron deficiency anaemia [Unknown]
  - Urinary tract infection [Unknown]
  - Blood triglycerides increased [Unknown]
  - Back pain [Unknown]
  - Abnormal weight gain [Unknown]
  - Attention deficit/hyperactivity disorder [Unknown]
  - Ligament sprain [Unknown]
  - Acute sinusitis [Unknown]
  - Animal bite [Unknown]
  - Hyperlipidaemia [Unknown]
  - Chest pain [Unknown]
  - Amnesia [Unknown]
  - Haematochezia [Unknown]
  - Depression [Unknown]
